FAERS Safety Report 4881648-7 (Version None)
Quarter: 2006Q1

REPORT INFORMATION
  Report Type: 
  Country: None (occurrence: None)
  Receive Date: 20060112
  Receipt Date: 20060103
  Transmission Date: 20060701
  Serious: Yes (Hospitalization)
  Sender: FDA-Public Use
  Company Number: 2005BI021577

PATIENT
  Age: 35 Year
  Sex: Female

DRUGS (2)
  1. AVONEX [Suspect]
     Indication: MULTIPLE SCLEROSIS
     Dosage: 30 UG; QW; IM
     Route: 030
     Dates: start: 20000605, end: 20030101
  2. AVONEX [Suspect]
     Indication: MULTIPLE SCLEROSIS
     Dosage: 30 UG; QW; IM
     Route: 030
     Dates: start: 20050512

REACTIONS (10)
  - APPENDICITIS [None]
  - HEMIPARESIS [None]
  - HYPOAESTHESIA [None]
  - LIPOMA [None]
  - NECK PAIN [None]
  - NERVE COMPRESSION [None]
  - OVARIAN CYST RUPTURED [None]
  - RED BLOOD CELLS URINE [None]
  - ROAD TRAFFIC ACCIDENT [None]
  - SWELLING [None]
